FAERS Safety Report 15617328 (Version 1)
Quarter: 2018Q4

REPORT INFORMATION
  Report Type: Report from Study
  Country: None (occurrence: US)
  Receive Date: 20181114
  Receipt Date: 20181114
  Transmission Date: 20190205
  Serious: Yes (Hospitalization, Other)
  Sender: FDA-Public Use
  Company Number: US-ABBVIE-18K-163-2547008-00

PATIENT
  Age: 60 Year
  Sex: Female
  Weight: 58.11 kg

DRUGS (19)
  1. HUMIRA [Suspect]
     Active Substance: ADALIMUMAB
     Indication: RHEUMATOID ARTHRITIS
     Route: 058
     Dates: start: 2015, end: 2015
  2. PREDNISONE. [Suspect]
     Active Substance: PREDNISONE
     Route: 048
  3. PREDNISONE. [Suspect]
     Active Substance: PREDNISONE
     Route: 048
  4. DOCUSATE [Concomitant]
     Active Substance: DOCUSATE
     Indication: CONSTIPATION PROPHYLAXIS
  5. NAPROXEN. [Concomitant]
     Active Substance: NAPROXEN
     Indication: ARTHRALGIA
  6. PREDNISONE. [Suspect]
     Active Substance: PREDNISONE
     Route: 048
     Dates: start: 2016
  7. OMEPRAZOLE. [Concomitant]
     Active Substance: OMEPRAZOLE
     Indication: PRODUCT USED FOR UNKNOWN INDICATION
  8. HUMIRA [Suspect]
     Active Substance: ADALIMUMAB
     Indication: PSORIATIC ARTHROPATHY
     Route: 058
     Dates: start: 201809, end: 201809
  9. PREDNISONE. [Suspect]
     Active Substance: PREDNISONE
     Indication: RHEUMATOID ARTHRITIS
     Route: 048
     Dates: start: 1999
  10. PREDNISONE. [Suspect]
     Active Substance: PREDNISONE
     Route: 048
  11. PREDNISONE. [Suspect]
     Active Substance: PREDNISONE
     Route: 048
  12. PREDNISONE. [Suspect]
     Active Substance: PREDNISONE
     Route: 048
     Dates: start: 2018
  13. LEVOTHYROXINE. [Concomitant]
     Active Substance: LEVOTHYROXINE
     Indication: THYROID DISORDER
  14. PREDNISONE. [Suspect]
     Active Substance: PREDNISONE
     Route: 048
  15. PREDNISONE. [Suspect]
     Active Substance: PREDNISONE
     Route: 048
  16. PREDNISONE. [Suspect]
     Active Substance: PREDNISONE
     Route: 048
  17. POTASSIUM [Concomitant]
     Active Substance: POTASSIUM
     Indication: BLOOD POTASSIUM DECREASED
  18. RANITIDINE. [Concomitant]
     Active Substance: RANITIDINE
     Indication: PROPHYLAXIS
  19. ALPRAZOLAM. [Concomitant]
     Active Substance: ALPRAZOLAM
     Indication: ANXIETY

REACTIONS (13)
  - Dysstasia [Recovered/Resolved]
  - Pneumonia streptococcal [Recovered/Resolved]
  - Gallbladder disorder [Recovered/Resolved]
  - White blood cell count increased [Recovered/Resolved]
  - Hyperglycaemia [Recovered/Resolved]
  - Sinus congestion [Recovered/Resolved]
  - Streptococcal sepsis [Recovered/Resolved]
  - Hypoglycaemia [Recovered/Resolved]
  - Abdominal pain [Recovered/Resolved]
  - Coagulation factor decreased [Recovered/Resolved]
  - Rheumatoid arthritis [Not Recovered/Not Resolved]
  - Speech disorder [Recovered/Resolved]
  - Nasopharyngitis [Recovered/Resolved]

NARRATIVE: CASE EVENT DATE: 2015
